FAERS Safety Report 6670944-9 (Version None)
Quarter: 2010Q2

REPORT INFORMATION
  Report Type: 
  Country: None (occurrence: None)
  Receive Date: 20100407
  Receipt Date: 20100329
  Transmission Date: 20101027
  Serious: Yes (Hospitalization)
  Sender: FDA-Public Use
  Company Number: FR-SANOFI-AVENTIS-2010SA017872

PATIENT
  Age: 70 Year
  Sex: Male

DRUGS (16)
  1. PLAVIX [Suspect]
     Indication: DRUG USE FOR UNKNOWN INDICATION
     Route: 048
     Dates: start: 19960101, end: 20100302
  2. KARDEGIC [Interacting]
     Indication: DRUG USE FOR UNKNOWN INDICATION
     Route: 048
     Dates: start: 19960101, end: 20100302
  3. KARDEGIC [Interacting]
  4. PREVISCAN [Interacting]
     Indication: DRUG USE FOR UNKNOWN INDICATION
     Route: 048
     Dates: start: 19960101, end: 20100302
  5. ATACAND [Concomitant]
     Indication: DRUG USE FOR UNKNOWN INDICATION
  6. ESIDRIX [Concomitant]
     Indication: DRUG USE FOR UNKNOWN INDICATION
  7. CELECTOL [Concomitant]
     Indication: DRUG USE FOR UNKNOWN INDICATION
  8. LERCAN [Concomitant]
     Indication: DRUG USE FOR UNKNOWN INDICATION
  9. SIMVASTATIN [Concomitant]
     Indication: DRUG USE FOR UNKNOWN INDICATION
  10. AMAREL [Concomitant]
     Indication: DRUG USE FOR UNKNOWN INDICATION
  11. FLUTICASONE/SALMETEROL [Concomitant]
     Indication: DRUG USE FOR UNKNOWN INDICATION
  12. ESOMEPRAZOLE [Concomitant]
     Indication: DRUG USE FOR UNKNOWN INDICATION
  13. TEMESTA [Concomitant]
     Indication: DRUG USE FOR UNKNOWN INDICATION
  14. DAFALGAN [Concomitant]
     Indication: DRUG USE FOR UNKNOWN INDICATION
  15. JANUVIA [Concomitant]
     Indication: DRUG USE FOR UNKNOWN INDICATION
  16. GLUCOPHAGE [Concomitant]
     Indication: DRUG USE FOR UNKNOWN INDICATION

REACTIONS (7)
  - ABDOMINAL PAIN [None]
  - CHEST PAIN [None]
  - DRUG INTERACTION [None]
  - GASTRIC HAEMORRHAGE [None]
  - HAEMORRHAGIC ANAEMIA [None]
  - INTERNATIONAL NORMALISED RATIO INCREASED [None]
  - RECTAL HAEMORRHAGE [None]
